FAERS Safety Report 10367705 (Version 1)
Quarter: 2014Q1

REPORT INFORMATION
  Report Type: Spontaneous
  Country: US (occurrence: None)
  Receive Date: 20140306
  Receipt Date: 20140306
  Transmission Date: 20141002
  Serious: Yes (Hospitalization, Other)
  Sender: FDA-Public Use
  Company Number: 163-21880-12092715

PATIENT
  Age: 64 Year
  Sex: Male
  Weight: 88.5 kg

DRUGS (2)
  1. REVLIMID (LENALIDOMIDE) (25 MILLIGRAM, CAPSULES) [Suspect]
     Indication: PLASMA CELL MYELOMA
     Dosage: 25 MG, 21 IN 28 D, PO?08/19/2012 - TEMPORARILY INTERRUPTED
     Route: 048
     Dates: start: 20120819
  2. DEXAMETHASONE (DEXAMETHASONE) [Concomitant]

REACTIONS (5)
  - Pulmonary embolism [None]
  - Deep vein thrombosis [None]
  - Joint swelling [None]
  - Rash [None]
  - Pruritus [None]
